FAERS Safety Report 7582003-1 (Version None)
Quarter: 2011Q2

REPORT INFORMATION
  Report Type: 
  Country: None (occurrence: None)
  Receive Date: 20110630
  Receipt Date: 20110609
  Transmission Date: 20111010
  Serious: No
  Sender: FDA-Public Use
  Company Number: US-BIOGENIDEC-2009BI031059

PATIENT
  Age: 59 Year
  Sex: Female

DRUGS (12)
  1. TYSABRI [Suspect]
     Indication: MULTIPLE SCLEROSIS
     Route: 042
     Dates: start: 20090514
  2. PROVIGIL [Concomitant]
     Route: 048
  3. TOPROL-XL [Concomitant]
     Route: 048
  4. MOTRIN [Concomitant]
     Route: 048
  5. BECONASE [Concomitant]
  6. STEROIDS [Concomitant]
  7. MIRAPEX [Concomitant]
     Route: 048
  8. ERGOCALCIFEROL [Concomitant]
     Route: 048
  9. BACLOFEN [Concomitant]
     Route: 048
  10. IMITREX [Concomitant]
     Route: 048
  11. BENADRYL [Concomitant]
     Indication: PREMEDICATION
     Route: 048
  12. WELLBUTRIN XL [Concomitant]
     Route: 048

REACTIONS (11)
  - UPPER RESPIRATORY TRACT INFECTION [None]
  - WEIGHT INCREASED [None]
  - MULTIPLE SCLEROSIS RELAPSE [None]
  - GAIT DISTURBANCE [None]
  - OEDEMA [None]
  - FLUID RETENTION [None]
  - PRURITUS [None]
  - POLLAKIURIA [None]
  - OEDEMA PERIPHERAL [None]
  - ARTHRALGIA [None]
  - PAIN IN EXTREMITY [None]
